APPROVED DRUG PRODUCT: CYCLOPHOSPHAMIDE
Active Ingredient: CYCLOPHOSPHAMIDE
Strength: 50MG
Dosage Form/Route: CAPSULE;ORAL
Application: A207014 | Product #002
Applicant: ANI PHARMACEUTICALS INC
Approved: Mar 19, 2018 | RLD: No | RS: No | Type: DISCN